FAERS Safety Report 5359592-0 (Version None)
Quarter: 2007Q2

REPORT INFORMATION
  Report Type: 
  Country: None (occurrence: None)
  Receive Date: 20070530
  Receipt Date: 20070125
  Transmission Date: 20071010
  Serious: Yes (Other)
  Sender: FDA-Public Use
  Company Number: US200606002889

PATIENT
  Age: 55 Year
  Sex: Female
  Weight: 79.4 kg

DRUGS (6)
  1. ZYPREXA [Suspect]
     Dates: start: 19970918, end: 20060223
  2. ABILIFY [Concomitant]
  3. HALDOL [Concomitant]
  4. DEPAKOTE [Concomitant]
  5. LITHIUM CARBONATE [Concomitant]
  6. MEDROXYPROGESTERONE [Concomitant]

REACTIONS (5)
  - BLOOD CHOLESTEROL INCREASED [None]
  - DIABETES MELLITUS [None]
  - DIABETIC KETOACIDOSIS [None]
  - EMOTIONAL DISTRESS [None]
  - PRESCRIBED OVERDOSE [None]
